FAERS Safety Report 8732907 (Version 2)
Quarter: 2012Q4

REPORT INFORMATION
  Report Type: 
  Country: US (occurrence: US)
  Receive Date: 20120820
  Receipt Date: 20120904
  Transmission Date: 20130627
  Serious: Yes (Other)
  Sender: FDA-Public Use
  Company Number: US-PFIZER INC-2012198527

PATIENT
  Age: 64 Year
  Sex: Female
  Weight: 72.56 kg

DRUGS (4)
  1. PREMARIN [Suspect]
     Indication: BONE DISORDER
     Dosage: 0.625 mg, daily
     Route: 048
  2. PREMARIN VAGINAL CREAM [Suspect]
     Indication: VULVOVAGINAL DRYNESS
     Dosage: UNK
     Route: 067
     Dates: end: 2012
  3. ESTRADIOL [Suspect]
     Indication: BONE DISORDER
     Dosage: 1 mg, daily
     Dates: end: 2012
  4. HUMULIN 70/30 [Concomitant]
     Indication: DIABETES MELLITUS
     Dosage: UNK, 2x/day

REACTIONS (6)
  - Cervix neoplasm [Unknown]
  - Vaginal haemorrhage [Recovered/Resolved]
  - Cervix enlargement [Unknown]
  - Uterine enlargement [Unknown]
  - Blood count abnormal [Unknown]
  - Off label use [Unknown]
